FAERS Safety Report 18832853 (Version 3)
Quarter: 2021Q1

REPORT INFORMATION
  Report Type: Report from Study
  Country: US (occurrence: US)
  Receive Date: 20210203
  Receipt Date: 20210218
  Transmission Date: 20210419
  Serious: Yes (Other)
  Sender: FDA-Public Use
  Company Number: US-BRISTOL-MYERS SQUIBB COMPANY-BMS-2021-008698

PATIENT
  Age: 62 Year
  Sex: Male
  Weight: 81 kg

DRUGS (3)
  1. NIVOLUMAB [Suspect]
     Active Substance: NIVOLUMAB
     Indication: MALIGNANT MELANOMA
     Dosage: 81.2 MILLIGRAM
     Route: 065
     Dates: start: 20201030, end: 20201228
  2. IPILIMUMAB [Suspect]
     Active Substance: IPILIMUMAB
     Indication: MALIGNANT MELANOMA
     Dosage: 243.6 MILLIGRAM
     Route: 065
     Dates: start: 20201030, end: 20201228
  3. GM?CSF [Suspect]
     Active Substance: GRANULOCYTE-MACROPHAGE COLONY-STIMULATING FACTOR
     Indication: MALIGNANT MELANOMA
     Dosage: 250 MICROGRAM
     Route: 065
     Dates: start: 20201030, end: 20201230

REACTIONS (1)
  - Sinus tachycardia [Recovered/Resolved]

NARRATIVE: CASE EVENT DATE: 20201230
